FAERS Safety Report 20421763 (Version 1)
Quarter: 2022Q1

REPORT INFORMATION
  Report Type: Spontaneous
  Country: US (occurrence: None)
  Receive Date: 20220202
  Receipt Date: 20220202
  Transmission Date: 20220423
  Serious: No
  Sender: FDA-Public Use
  Company Number: None

PATIENT
  Age: 61 Year
  Sex: Male

DRUGS (1)
  1. PAXLOVID [Suspect]
     Active Substance: NIRMATRELVIR\RITONAVIR
     Indication: COVID-19
     Dosage: FREQUENCY : TWICE A DAY;?
     Route: 048
     Dates: start: 20220127, end: 20220131

REACTIONS (5)
  - Rash [None]
  - Rash [None]
  - Faeces pale [None]
  - Photophobia [None]
  - Hyperacusis [None]

NARRATIVE: CASE EVENT DATE: 20220131
